FAERS Safety Report 11498421 (Version 1)
Quarter: 2015Q3

REPORT INFORMATION
  Report Type: Spontaneous
  Country: JP (occurrence: JP)
  Receive Date: 20150911
  Receipt Date: 20150911
  Transmission Date: 20151125
  Serious: Yes (Hospitalization)
  Sender: FDA-Public Use
  Company Number: JP-IMPAX LABORATORIES, INC-2015-IPXL-00913

PATIENT
  Age: 53 Year
  Sex: Female
  Weight: 55.78 kg

DRUGS (2)
  1. BIOTIN [Concomitant]
     Active Substance: BIOTIN
     Indication: PUSTULAR PSORIASIS
     Dosage: UNK
     Route: 065
  2. MINOCYCLINE HYDROCHLORIDE. [Suspect]
     Active Substance: MINOCYCLINE HYDROCHLORIDE
     Indication: PUSTULAR PSORIASIS
     Dosage: 100 MG, DAILY
     Route: 065

REACTIONS (1)
  - Polyarteritis nodosa [Recovering/Resolving]
